FAERS Safety Report 4335429-3 (Version None)
Quarter: 2004Q2

REPORT INFORMATION
  Report Type: 
  Country: None (occurrence: None)
  Receive Date: 20040409
  Receipt Date: 20040329
  Transmission Date: 20050107
  Serious: Yes (Other)
  Sender: FDA-Public Use
  Company Number: MY-BRISTOL-MYERS SQUIBB COMPANY-12551024

PATIENT
  Age: 2 Year
  Sex: Male

DRUGS (2)
  1. VINCRISTINE [Suspect]
     Indication: LYMPHOCYTIC LEUKAEMIA
     Route: 042
  2. ITRACONAZOLE [Interacting]
     Indication: ANTIFUNGAL PROPHYLAXIS

REACTIONS (8)
  - ABASIA [None]
  - DEMYELINATION [None]
  - DRUG INTERACTION [None]
  - ILEUS [None]
  - NEUROTOXICITY [None]
  - PARAPARESIS [None]
  - PERIPHERAL SENSORIMOTOR NEUROPATHY [None]
  - URINARY RETENTION [None]
